FAERS Safety Report 19845810 (Version 1)
Quarter: 2021Q3

REPORT INFORMATION
  Report Type: Report from Study
  Country: US (occurrence: US)
  Receive Date: 20210916
  Receipt Date: 20210916
  Transmission Date: 20211014
  Serious: Yes (Death, Other)
  Sender: FDA-Public Use
  Company Number: US-GILEAD-2021-0548786

PATIENT
  Age: 73 Year
  Sex: Male

DRUGS (2)
  1. DOPTELET [Concomitant]
     Active Substance: AVATROMBOPAG MALEATE
     Dosage: UNKNOWN FILLED AT ANOTHER PHARMACY
  2. IDELALISIB [Suspect]
     Active Substance: IDELALISIB
     Indication: CHRONIC LYMPHOCYTIC LEUKAEMIA
     Dosage: ^150MG 150 MG PO TWICE A DAY^
     Route: 048
     Dates: start: 202107

REACTIONS (1)
  - Death [Fatal]
